FAERS Safety Report 4386554-2 (Version None)
Quarter: 2004Q2

REPORT INFORMATION
  Report Type: 
  Country: None (occurrence: None)
  Receive Date: 20040623
  Receipt Date: 20040610
  Transmission Date: 20050107
  Serious: Yes (Hospitalization, Other)
  Sender: FDA-Public Use
  Company Number: 2004039143

PATIENT
  Age: 76 Year
  Sex: Female

DRUGS (2)
  1. NORVASC [Suspect]
     Indication: HYPERTENSION
     Dosage: 5 MG (1 IN 1 D), ORAL
     Route: 048
     Dates: start: 19941101, end: 20040617
  2. SER-AP-ES (HYDRALAZINE HYDROCHLORIDE, HYDROCHLOROTHIAZIDE, RESERPINE) [Concomitant]

REACTIONS (4)
  - CAROTID ENDARTERECTOMY [None]
  - HYPOAESTHESIA [None]
  - PARALYSIS [None]
  - TREATMENT NONCOMPLIANCE [None]
